FAERS Safety Report 6439760-7 (Version None)
Quarter: 2009Q4

REPORT INFORMATION
  Report Type: 
  Country: None (occurrence: None)
  Receive Date: 20091112
  Receipt Date: 20091112
  Transmission Date: 20100525
  Serious: Yes (Hospitalization)
  Sender: FDA-Public Use
  Company Number: None

PATIENT
  Sex: Male
  Weight: 23.6 kg

DRUGS (5)
  1. CYCLOPHOSPHAMIDE [Suspect]
     Dosage: 2000 MG
     Dates: end: 20091027
  2. ETOPOSIDE [Suspect]
     Dosage: 450 MG
     Dates: end: 20091027
  3. G-CSF (FILGRASTIM, AMGEN) [Suspect]
     Dosage: 1080 MCG
     Dates: end: 20091105
  4. METHOTREXATE SODIUM [Suspect]
     Dosage: 12 MG
     Dates: end: 20091015
  5. PENTAMIDINE ISETHIONATE [Concomitant]

REACTIONS (3)
  - NEUTROPHIL COUNT DECREASED [None]
  - PYREXIA [None]
  - WHITE BLOOD CELL COUNT DECREASED [None]
